FAERS Safety Report 7116654-5 (Version None)
Quarter: 2010Q4

REPORT INFORMATION
  Report Type: 
  Country: None (occurrence: None)
  Receive Date: 20101122
  Receipt Date: 20101115
  Transmission Date: 20110411
  Serious: Yes (Hospitalization, Congenital Anomaly)
  Sender: FDA-Public Use
  Company Number: A0894318A

PATIENT
  Sex: Male
  Weight: 1.9 kg

DRUGS (1)
  1. PAXIL [Suspect]

REACTIONS (7)
  - ATRIAL SEPTAL DEFECT [None]
  - COARCTATION OF THE AORTA [None]
  - CONGENITAL AORTIC ATRESIA [None]
  - DRUG EXPOSURE DURING PREGNANCY [None]
  - HYPOPLASTIC LEFT HEART SYNDROME [None]
  - MITRAL VALVE STENOSIS [None]
  - PATENT DUCTUS ARTERIOSUS [None]
